FAERS Safety Report 11167173 (Version 4)
Quarter: 2015Q2

REPORT INFORMATION
  Report Type: Spontaneous
  Country: JP (occurrence: JP)
  Receive Date: 20150605
  Receipt Date: 20150615
  Transmission Date: 20150821
  Serious: Yes (Death)
  Sender: FDA-Public Use
  Company Number: JP-JNJFOC-20150602520

PATIENT
  Age: 85 Year
  Sex: Male

DRUGS (1)
  1. DUROTEP MT [Suspect]
     Active Substance: FENTANYL
     Indication: PAIN
     Route: 062
     Dates: start: 20150514, end: 20150514

REACTIONS (2)
  - Aortic aneurysm rupture [Fatal]
  - Product use issue [Unknown]

NARRATIVE: CASE EVENT DATE: 20150514
